FAERS Safety Report 7322915-7 (Version None)
Quarter: 2011Q1

REPORT INFORMATION
  Report Type: 
  Country: None (occurrence: None)
  Receive Date: 20110301
  Receipt Date: 20110217
  Transmission Date: 20110831
  Serious: Yes (Hospitalization, Other)
  Sender: FDA-Public Use
  Company Number: US-JNJFOC-20110107990

PATIENT
  Sex: Male
  Weight: 12.7 kg

DRUGS (8)
  1. FEOSOL [Concomitant]
  2. ACETAMINOPHEN [Concomitant]
  3. HYDROCODONE BITARTRATE [Suspect]
     Indication: ILL-DEFINED DISORDER
  4. PREDNISONE [Concomitant]
  5. PROBIOTICS [Concomitant]
  6. INFLIXIMAB, RECOMBINANT [Suspect]
     Indication: CROHN'S DISEASE
     Route: 042
  7. MORPHINE [Suspect]
     Indication: ILL-DEFINED DISORDER
  8. INFLIXIMAB, RECOMBINANT [Suspect]
     Route: 042

REACTIONS (7)
  - WEIGHT DECREASED [None]
  - POSTOPERATIVE ILEUS [None]
  - HYPONATRAEMIA [None]
  - GASTROINTESTINAL STOMA COMPLICATION [None]
  - STAPHYLOCOCCUS TEST POSITIVE [None]
  - RECTAL HAEMORRHAGE [None]
  - ADRENAL INSUFFICIENCY [None]
